FAERS Safety Report 5129664-4 (Version None)
Quarter: 2006Q4

REPORT INFORMATION
  Report Type: 
  Country: None (occurrence: None)
  Receive Date: 20061018
  Receipt Date: 20060918
  Transmission Date: 20070319
  Serious: Yes (Hospitalization)
  Sender: FDA-Public Use
  Company Number: US-GLAXOSMITHKLINE-A0620540A

PATIENT
  Age: 50 Year
  Sex: Female
  Weight: 72 kg

DRUGS (4)
  1. REQUIP [Suspect]
     Indication: RESTLESS LEGS SYNDROME
     Route: 048
  2. PAROXETINE HCL [Concomitant]
     Indication: DEPRESSION
     Route: 048
  3. ALCOHOL [Concomitant]
     Route: 048
  4. LISINOPRIL [Concomitant]
     Indication: HYPERTENSION
     Dosage: 20MGD PER DAY
     Route: 048

REACTIONS (3)
  - OVERDOSE [None]
  - SOMNOLENCE [None]
  - SUICIDE ATTEMPT [None]
